FAERS Safety Report 8174757-0 (Version None)
Quarter: 2012Q1

REPORT INFORMATION
  Report Type: 
  Country: None (occurrence: None)
  Receive Date: 20120229
  Receipt Date: 20111209
  Transmission Date: 20120608
  Serious: Yes (Hospitalization, Other)
  Sender: FDA-Public Use
  Company Number: PHHO2008FR13256

PATIENT
  Sex: Male
  Weight: 15.7 kg

DRUGS (3)
  1. PREDNISONE TAB [Concomitant]
  2. INDOMETHACIN [Concomitant]
  3. ILARIS [Suspect]
     Indication: JUVENILE ARTHRITIS
     Dosage: UNK
     Route: 058
     Dates: start: 20071113, end: 20090727

REACTIONS (8)
  - PYREXIA [None]
  - HEPATITIS VIRAL [None]
  - ANAEMIA [None]
  - ARTHRITIS [None]
  - RETICULOCYTOPENIA [None]
  - EPSTEIN-BARR VIRUS INFECTION [None]
  - VIRAL INFECTION [None]
  - HISTIOCYTOSIS HAEMATOPHAGIC [None]
